FAERS Safety Report 10344808 (Version 1)
Quarter: 2014Q3

REPORT INFORMATION
  Report Type: Spontaneous
  Country: US (occurrence: None)
  Receive Date: 20140724
  Receipt Date: 20140724
  Transmission Date: 20150326
  Serious: Yes (Life-Threatening, Disabling)
  Sender: FDA-Public Use
  Company Number: None

PATIENT
  Sex: Female

DRUGS (10)
  1. NEUROPLEX [Concomitant]
  2. CHLOROPHYLL [Concomitant]
  3. CATAPLEX D [Concomitant]
  4. FOLIC ACID B12 [Concomitant]
  5. FERROFOOD [Concomitant]
  6. COREG [Concomitant]
     Active Substance: CARVEDILOL
  7. PRADAXA [Suspect]
     Active Substance: DABIGATRAN ETEXILATE MESYLATE
     Indication: THROMBOSIS
     Route: 048
     Dates: start: 20131008, end: 20131107
  8. ORGANICALLY BOUND MINERALS [Concomitant]
  9. CALCIUM LACTATE [Concomitant]
     Active Substance: CALCIUM LACTATE
  10. NIACINAMIDE B6 [Concomitant]

REACTIONS (7)
  - Impaired work ability [None]
  - Muscular weakness [None]
  - Pain [None]
  - Myalgia [None]
  - Movement disorder [None]
  - Gait disturbance [None]
  - Impaired driving ability [None]
